FAERS Safety Report 9167351 (Version 1)
Quarter: 2013Q1

REPORT INFORMATION
  Report Type: Spontaneous
  Country: US (occurrence: None)
  Receive Date: 20130314
  Receipt Date: 20130314
  Transmission Date: 20140127
  Serious: Yes (Hospitalization)
  Sender: FDA-Public Use
  Company Number: None

PATIENT
  Sex: Male
  Weight: 83 kg

DRUGS (1)
  1. CAMPATH [Suspect]

REACTIONS (9)
  - Pyrexia [None]
  - Confusional state [None]
  - Asthenia [None]
  - Respiratory failure [None]
  - Sepsis [None]
  - Renal failure [None]
  - Pneumonia [None]
  - Fungaemia [None]
  - Encephalopathy [None]
